FAERS Safety Report 5089137-4 (Version None)
Quarter: 2006Q3

REPORT INFORMATION
  Report Type: 
  Country: None (occurrence: None)
  Receive Date: 20060825
  Receipt Date: 20060821
  Transmission Date: 20061208
  Serious: Yes (Hospitalization)
  Sender: FDA-Public Use
  Company Number: LB-BOEHRINGER INGELHEIM GMBH, GERMANY-2006-DE-04348GD

PATIENT
  Sex: Female

DRUGS (5)
  1. SERTRALINE [Suspect]
     Indication: TIC
  2. CLONIDINE [Suspect]
     Indication: TIC
  3. CLONAZEPAM [Suspect]
     Indication: TIC
  4. HALOPERIDOL [Suspect]
     Indication: TIC
     Dosage: {/=15 MG
  5. DESIPRAMINE HCL [Suspect]
     Indication: TIC

REACTIONS (5)
  - DISEASE RECURRENCE [None]
  - EXTRAPYRAMIDAL DISORDER [None]
  - MUSCLE RIGIDITY [None]
  - TIC [None]
  - TREMOR [None]
